FAERS Safety Report 8583879 (Version 2)
Quarter: 2013Q1

REPORT INFORMATION
  Report Type: Spontaneous
  Country: GB (occurrence: GB)
  Receive Date: 20120529
  Receipt Date: 20130225
  Transmission Date: 20140127
  Serious: Yes (Other)
  Sender: FDA-Public Use
  Company Number: GB-ROCHE-1072246

PATIENT
  Age: 91 Year
  Sex: Female

DRUGS (4)
  1. LUCENTIS [Suspect]
     Indication: AGE-RELATED MACULAR DEGENERATION
     Route: 050
     Dates: start: 20120214
  2. LUCENTIS [Suspect]
     Route: 050
     Dates: start: 20120313
  3. LUCENTIS [Suspect]
     Route: 050
     Dates: start: 20120703
  4. ASPIRIN [Concomitant]
     Indication: TRANSIENT ISCHAEMIC ATTACK
     Route: 048

REACTIONS (3)
  - Viral infection [Recovered/Resolved]
  - Visual acuity reduced [Recovered/Resolved]
  - Malaise [Recovered/Resolved]
